FAERS Safety Report 14074645 (Version 1)
Quarter: 2017Q4

REPORT INFORMATION
  Report Type: Report from Study
  Country: US (occurrence: US)
  Receive Date: 20171010
  Receipt Date: 20171010
  Transmission Date: 20180321
  Serious: Yes (Other)
  Sender: FDA-Public Use
  Company Number: US-ARIAD PHARMACEUTICALS, INC-2017US009020

PATIENT
  Sex: Male
  Weight: 84 kg

DRUGS (1)
  1. ICLUSIG [Suspect]
     Active Substance: PONATINIB
     Indication: CHRONIC MYELOID LEUKAEMIA
     Dosage: 45 MG, QD
     Route: 048
     Dates: start: 20141229

REACTIONS (4)
  - Nephrectomy [Unknown]
  - Rash macular [Unknown]
  - Chest pain [Unknown]
  - Hypercholesterolaemia [Unknown]
